FAERS Safety Report 7728297-0 (Version None)
Quarter: 2011Q3

REPORT INFORMATION
  Report Type: 
  Country: None (occurrence: None)
  Receive Date: 20110905
  Receipt Date: 20110831
  Transmission Date: 20111222
  Serious: Yes (Hospitalization)
  Sender: FDA-Public Use
  Company Number: PHHY2011US69626

PATIENT
  Sex: Female

DRUGS (1)
  1. EXJADE [Suspect]
     Dosage: 500 MG, QD
     Route: 048

REACTIONS (4)
  - STOMATITIS [None]
  - ORAL PAIN [None]
  - INJURY [None]
  - FRACTURE [None]
